FAERS Safety Report 6877198-9 (Version None)
Quarter: 2010Q3

REPORT INFORMATION
  Report Type: 
  Country: None (occurrence: None)
  Receive Date: 20100727
  Receipt Date: 20100720
  Transmission Date: 20110219
  Serious: Yes (Death, Other)
  Sender: FDA-Public Use
  Company Number: US-AMGEN-QUU407481

PATIENT
  Sex: Female
  Weight: 76 kg

DRUGS (3)
  1. NPLATE [Suspect]
     Indication: IDIOPATHIC THROMBOCYTOPENIC PURPURA
     Dates: start: 20081206, end: 20081215
  2. CORTICOSTEROIDS [Concomitant]
     Dates: start: 20081121
  3. RITUXIMAB [Concomitant]
     Dates: start: 20081129

REACTIONS (4)
  - DRUG INEFFECTIVE [None]
  - PULMONARY HAEMORRHAGE [None]
  - PURPURA [None]
  - TRANSFUSION REACTION [None]
